FAERS Safety Report 10642072 (Version 3)
Quarter: 2015Q1

REPORT INFORMATION
  Report Type: Spontaneous
  Country: RU (occurrence: RU)
  Receive Date: 20141210
  Receipt Date: 20150304
  Transmission Date: 20150720
  Serious: Yes (Death)
  Sender: FDA-Public Use
  Company Number: RU-ROCHE-1505131

PATIENT
  Age: 58 Year
  Sex: Male

DRUGS (1)
  1. MABTHERA [Suspect]
     Active Substance: RITUXIMAB
     Indication: GRANULOMATOSIS WITH POLYANGIITIS
     Dosage: AMOUNT OF DRUG RECEIVED DURING TREATMENT: 2 G
     Route: 065

REACTIONS (2)
  - Sepsis [Fatal]
  - Kaposi^s sarcoma [Fatal]
